FAERS Safety Report 9898465 (Version 1)
Quarter: 2014Q1

REPORT INFORMATION
  Report Type: Spontaneous
  Country: US (occurrence: US)
  Receive Date: 20140214
  Receipt Date: 20140214
  Transmission Date: 20141002
  Serious: No
  Sender: FDA-Public Use
  Company Number: US-BAYER-2014-023599

PATIENT
  Age: 46 Year
  Sex: Male
  Weight: 176.87 kg

DRUGS (2)
  1. ALEVE CAPLET [Suspect]
     Indication: PAIN
     Dosage: 03 DF, ONCE
     Route: 048
     Dates: start: 20140212, end: 20140212
  2. NAPROXEN [Concomitant]

REACTIONS (2)
  - Drug ineffective [None]
  - Inappropriate schedule of drug administration [None]
